FAERS Safety Report 6577288-4 (Version None)
Quarter: 2010Q1

REPORT INFORMATION
  Report Type: 
  Country: None (occurrence: None)
  Receive Date: 20100210
  Receipt Date: 20100202
  Transmission Date: 20100710
  Serious: Yes (Hospitalization)
  Sender: FDA-Public Use
  Company Number: KR-GENENTECH-295774

PATIENT
  Sex: Male
  Weight: 56.5 kg

DRUGS (5)
  1. RITUXIMAB [Suspect]
     Indication: DIFFUSE LARGE B-CELL LYMPHOMA
     Dosage: UNK
     Route: 042
     Dates: start: 20090817
  2. CYCLOPHOSPHAMIDE [Suspect]
     Indication: DIFFUSE LARGE B-CELL LYMPHOMA
     Dosage: 1263 MG, QD
     Route: 065
     Dates: start: 20090818
  3. ADRIAMYCIN PFS [Suspect]
     Indication: DIFFUSE LARGE B-CELL LYMPHOMA
     Dosage: 83.5 MG, QD
     Route: 065
     Dates: start: 20090818
  4. VINCRISTINE [Suspect]
     Indication: DIFFUSE LARGE B-CELL LYMPHOMA
     Dosage: 2 MG, QD
     Route: 065
     Dates: start: 20090818
  5. PREDNISOLONE [Suspect]
     Indication: DIFFUSE LARGE B-CELL LYMPHOMA
     Dosage: 100 MG, QD
     Route: 065
     Dates: start: 20090818

REACTIONS (5)
  - FEBRILE NEUTROPENIA [None]
  - NEUTROPENIA [None]
  - NEUTROPHIL COUNT INCREASED [None]
  - PYREXIA [None]
  - WHITE BLOOD CELL COUNT INCREASED [None]
